FAERS Safety Report 4427544-0 (Version None)
Quarter: 2004Q3

REPORT INFORMATION
  Report Type: 
  Country: None (occurrence: None)
  Receive Date: 20040817
  Receipt Date: 20020516
  Transmission Date: 20050211
  Serious: Yes (Other)
  Sender: FDA-Public Use
  Company Number: US-MERCK-0205USA02077

PATIENT
  Age: 83 Year
  Sex: Female
  Weight: 61 kg

DRUGS (1)
  1. VIOXX [Suspect]
     Route: 048
     Dates: start: 20010101

REACTIONS (30)
  - ACUTE MYOCARDIAL INFARCTION [None]
  - ANAEMIA [None]
  - AORTIC VALVE STENOSIS [None]
  - ARTHRALGIA [None]
  - ASTHENIA [None]
  - CAROTID ARTERY DISEASE [None]
  - CATARACT [None]
  - CEREBRAL INFARCTION [None]
  - CEREBROVASCULAR ACCIDENT [None]
  - CONFUSIONAL STATE [None]
  - CORONARY ARTERY DISEASE [None]
  - DEMENTIA [None]
  - DIFFICULTY IN WALKING [None]
  - DIZZINESS [None]
  - DRUG HYPERSENSITIVITY [None]
  - ENZYME ABNORMALITY [None]
  - EYE DISORDER [None]
  - FALL [None]
  - INSOMNIA [None]
  - INTERNATIONAL NORMALISED RATIO DECREASED [None]
  - JOINT SWELLING [None]
  - LACERATION [None]
  - LETHARGY [None]
  - MENTAL STATUS CHANGES [None]
  - MYOCARDIAL ISCHAEMIA [None]
  - NUCLEAR MAGNETIC RESONANCE IMAGING BRAIN ABNORMAL [None]
  - PAIN IN EXTREMITY [None]
  - RENAL CYST [None]
  - SEASONAL ALLERGY [None]
  - URINARY TRACT INFECTION [None]
